FAERS Safety Report 16958695 (Version 2)
Quarter: 2020Q3

REPORT INFORMATION
  Report Type: Report from Study
  Country: US (occurrence: US)
  Receive Date: 20191024
  Receipt Date: 20200806
  Transmission Date: 20201102
  Serious: Yes (Other)
  Sender: FDA-Public Use
  Company Number: US-ACTELION-A-NJ2019-197285

PATIENT
  Sex: Female
  Weight: 108.84 kg

DRUGS (2)
  1. OPSUMIT [Suspect]
     Active Substance: MACITENTAN
     Indication: PULMONARY ARTERIAL HYPERTENSION
     Dosage: 10 MG, QD
     Route: 048
  2. ADEMPAS [Concomitant]
     Active Substance: RIOCIGUAT

REACTIONS (6)
  - Malaise [Unknown]
  - Fall [Recovered/Resolved]
  - Myocardial infarction [Unknown]
  - Dyspnoea [Unknown]
  - Contusion [Unknown]
  - Nasopharyngitis [Unknown]
